FAERS Safety Report 12427758 (Version 2)
Quarter: 2017Q2

REPORT INFORMATION
  Report Type: Spontaneous
  Country: DE (occurrence: DE)
  Receive Date: 20160602
  Receipt Date: 20170424
  Transmission Date: 20170830
  Serious: Yes (Life-Threatening)
  Sender: FDA-Public Use
  Company Number: DE-SUN PHARMACEUTICAL INDUSTRIES LTD-2016R1-117501

PATIENT
  Age: 56 Year
  Sex: Male
  Weight: 66 kg

DRUGS (4)
  1. LAMOTRIGINE. [Suspect]
     Active Substance: LAMOTRIGINE
     Indication: EPILEPSY
     Dosage: 150 MG
     Route: 048
  2. NOVALGIN [Suspect]
     Active Substance: METAMIZOLE SODIUM
     Indication: GASTRITIS EROSIVE
     Dosage: 1G
     Route: 042
     Dates: start: 20160414, end: 20160417
  3. VALPROIC ACID. [Suspect]
     Active Substance: VALPROIC ACID
     Indication: EPILEPSY
     Dosage: 600 MG
     Route: 048
  4. NOVALGIN [Suspect]
     Active Substance: METAMIZOLE SODIUM
     Indication: GASTRITIS EROSIVE
     Dosage: 500 MG, QID
     Route: 048
     Dates: start: 20160416, end: 20160417

REACTIONS (1)
  - Pure white cell aplasia [Recovered/Resolved]

NARRATIVE: CASE EVENT DATE: 20160416
